FAERS Safety Report 6913350-1 (Version None)
Quarter: 2010Q3

REPORT INFORMATION
  Report Type: 
  Country: None (occurrence: None)
  Receive Date: 20100809
  Receipt Date: 20100803
  Transmission Date: 20110219
  Serious: Yes (Death, Other)
  Sender: FDA-Public Use
  Company Number: PHHY2010US48405

PATIENT
  Sex: Female
  Weight: 59 kg

DRUGS (23)
  1. EXJADE [Suspect]
     Indication: MINERAL METABOLISM DISORDER
     Dosage: 1500 MG, DAILY
     Route: 048
     Dates: start: 20100319, end: 20100527
  2. EXJADE [Suspect]
     Indication: MYELOPROLIFERATIVE DISORDER
  3. CALCIUM [Concomitant]
     Dosage: ONE TABLET DAILY
  4. CENTRUM SILVER [Concomitant]
     Dosage: ONE TABLET DAILY
  5. DULCOLAX [Concomitant]
  6. ECHINACEA EXTRACT [Concomitant]
     Dosage: 400 MG DAILY
  7. SODIUM PHOSPHATES [Concomitant]
  8. FLUZONE [Concomitant]
  9. HYDREA [Concomitant]
  10. IMDUR [Concomitant]
  11. IMODIUM [Concomitant]
     Dosage: 2 MG, UNK
  12. LASIX [Concomitant]
     Dosage: 40 MG DAILY
  13. MILK OF MAGNESIA TAB [Concomitant]
  14. MYLANTA-II                              /USA/ [Concomitant]
  15. PAXIL [Concomitant]
  16. POTASSIUM [Concomitant]
  17. PRILOSEC [Concomitant]
  18. QUINAMM [Concomitant]
  19. RISPERDAL [Concomitant]
  20. SYNTHROID [Concomitant]
     Dosage: 150 UG, QD
  21. ACETAMINOPHEN [Concomitant]
  22. ZYLOPRIM [Concomitant]
     Dosage: 200 MG DAILY
  23. RED BLOOD CELLS [Concomitant]
     Dosage: PRN

REACTIONS (6)
  - ACUTE MYELOID LEUKAEMIA [None]
  - ASTHENIA [None]
  - CONFUSIONAL STATE [None]
  - FATIGUE [None]
  - GENERAL PHYSICAL HEALTH DETERIORATION [None]
  - MALIGNANT NEOPLASM PROGRESSION [None]
